FAERS Safety Report 17770447 (Version 5)
Quarter: 2020Q4

REPORT INFORMATION
  Report Type: Spontaneous
  Country: US (occurrence: US)
  Receive Date: 20200512
  Receipt Date: 20201130
  Transmission Date: 20210113
  Serious: Yes (Hospitalization, Other)
  Sender: FDA-Public Use
  Company Number: US-SHIRE-US202015792

PATIENT
  Age: 54 Year
  Sex: Female
  Weight: 69.84 kg

DRUGS (4)
  1. GATTEX [Suspect]
     Active Substance: TEDUGLUTIDE\WATER
     Indication: SHORT-BOWEL SYNDROME
     Dosage: 0.35 MILLILITER, 1X/DAY:QD
     Route: 065
     Dates: start: 202005
  2. GATTEX [Suspect]
     Active Substance: TEDUGLUTIDE\WATER
     Indication: SHORT-BOWEL SYNDROME
     Dosage: 0.35 MILLILITER, 1X/DAY:QD
     Route: 065
     Dates: start: 202005
  3. GATTEX [Suspect]
     Active Substance: TEDUGLUTIDE\WATER
     Indication: SHORT-BOWEL SYNDROME
     Dosage: 0.35 MILLILITER, 1X/DAY:QD
     Route: 065
     Dates: start: 202005
  4. GATTEX [Suspect]
     Active Substance: TEDUGLUTIDE\WATER
     Indication: SHORT-BOWEL SYNDROME
     Dosage: 0.35 MILLILITER, 1X/DAY:QD
     Route: 065
     Dates: start: 202005

REACTIONS (6)
  - Device difficult to use [Unknown]
  - Nausea [Unknown]
  - Nephrolithiasis [Recovering/Resolving]
  - Eating disorder [Unknown]
  - Urinary tract infection [Recovered/Resolved]
  - Sepsis [Unknown]

NARRATIVE: CASE EVENT DATE: 20200710
